FAERS Safety Report 17770639 (Version 3)
Quarter: 2020Q2

REPORT INFORMATION
  Report Type: Report from Study
  Country: GB (occurrence: GB)
  Receive Date: 20200512
  Receipt Date: 20200608
  Transmission Date: 20200714
  Serious: Yes (Other)
  Sender: FDA-Public Use
  Company Number: NVSC2020GB126343

PATIENT
  Sex: Male

DRUGS (1)
  1. HYRIMOZ [Suspect]
     Active Substance: ADALIMUMAB-ADAZ
     Indication: ANKYLOSING SPONDYLITIS
     Dosage: 40 MG (EOW)
     Route: 058
     Dates: start: 20191209

REACTIONS (9)
  - Facial paralysis [Recovered/Resolved]
  - Hypoaesthesia [Recovered/Resolved]
  - Ligament sprain [Recovered/Resolved]
  - Fear of injection [Recovered/Resolved]
  - Immune system disorder [Unknown]
  - Product dose omission [Unknown]
  - Cerebral palsy [Recovered/Resolved]
  - Musculoskeletal stiffness [Unknown]
  - Withdrawal syndrome [Unknown]
